FAERS Safety Report 6443187-1 (Version None)
Quarter: 2009Q4

REPORT INFORMATION
  Report Type: 
  Country: None (occurrence: None)
  Receive Date: 20091117
  Receipt Date: 20091116
  Transmission Date: 20100525
  Serious: Yes (Hospitalization)
  Sender: FDA-Public Use
  Company Number: Z0001659A

PATIENT
  Sex: Male
  Weight: 72 kg

DRUGS (3)
  1. LAPATINIB [Suspect]
     Indication: GASTRIC CANCER
     Dosage: 1500MG PER DAY
     Route: 048
     Dates: start: 20090728
  2. PACLITAXEL [Suspect]
     Indication: GASTRIC CANCER
     Dosage: 80MGM2 CYCLIC
     Route: 042
     Dates: start: 20090728
  3. ROHYPNOL [Concomitant]
     Dosage: 2MG AS REQUIRED
     Route: 042
     Dates: start: 20090919

REACTIONS (1)
  - INTERSTITIAL LUNG DISEASE [None]
